FAERS Safety Report 8356345-6 (Version None)
Quarter: 2012Q2

REPORT INFORMATION
  Report Type: 
  Country: None (occurrence: None)
  Receive Date: 20120514
  Receipt Date: 20120507
  Transmission Date: 20120825
  Serious: Yes (Other)
  Sender: FDA-Public Use
  Company Number: JP-SANOFI-AVENTIS-2012SA029232

PATIENT
  Age: 59 Year
  Sex: Female

DRUGS (2)
  1. FLUTICASONE PROPIONATE/SALMETEROL [Concomitant]
  2. ALLEGRA [Suspect]
     Route: 048
     Dates: start: 20120412, end: 20120413

REACTIONS (2)
  - DYSURIA [None]
  - URINARY RETENTION [None]
